FAERS Safety Report 4898396-X (Version None)
Quarter: 2006Q1

REPORT INFORMATION
  Report Type: 
  Country: None (occurrence: None)
  Receive Date: 20060131
  Receipt Date: 20060131
  Transmission Date: 20060701
  Serious: Yes (Life-Threatening, Hospitalization)
  Sender: FDA-Public Use
  Company Number: None

PATIENT
  Age: 58 Year
  Sex: Female
  Weight: 57.1532 kg

DRUGS (1)
  1. VIOXX [Suspect]
     Indication: NECK PAIN
     Dosage: 1 TABLET DAILY
     Dates: start: 20040712, end: 20040714

REACTIONS (2)
  - CARDIAC OPERATION [None]
  - MYOCARDIAL INFARCTION [None]
